FAERS Safety Report 10673294 (Version 1)
Quarter: 2014Q4

REPORT INFORMATION
  Report Type: Spontaneous
  Country: US (occurrence: US)
  Receive Date: 20141224
  Receipt Date: 20141224
  Transmission Date: 20150529
  Serious: Yes (Hospitalization, Other)
  Sender: FDA-Public Use
  Company Number: US-AMGEN-USASP2014099458

PATIENT
  Age: 57 Year
  Sex: Female

DRUGS (1)
  1. ENBREL [Suspect]
     Active Substance: ETANERCEPT
     Indication: RHEUMATOID ARTHRITIS
     Dosage: 50 MG, QWK
     Route: 065
     Dates: start: 2003

REACTIONS (8)
  - Pharyngeal neoplasm [Recovered/Resolved]
  - Rheumatoid nodule [Not Recovered/Not Resolved]
  - Neoplasm [Recovered/Resolved]
  - Pulmonary mass [Not Recovered/Not Resolved]
  - Ocular neoplasm [Recovered/Resolved]
  - Cardiac disorder [Not Recovered/Not Resolved]
  - Salivary gland neoplasm [Recovered/Resolved]
  - Arthropathy [Unknown]
